FAERS Safety Report 9122778 (Version 4)
Quarter: 2013Q2

REPORT INFORMATION
  Report Type: Spontaneous
  Country: SE (occurrence: SE)
  Receive Date: 20130227
  Receipt Date: 20130419
  Transmission Date: 20140414
  Serious: Yes (Other)
  Sender: FDA-Public Use
  Company Number: SE-GALDERMA-SE13000582

PATIENT
  Age: 21 Year
  Sex: Female

DRUGS (1)
  1. BASIRON AC [Suspect]
     Indication: ACNE
     Dosage: 5%
     Route: 061
     Dates: start: 20130209, end: 20130209

REACTIONS (9)
  - Hypersensitivity [Recovered/Resolved with Sequelae]
  - Pharyngeal oedema [Recovered/Resolved]
  - Eczema [Recovered/Resolved with Sequelae]
  - Rash pustular [Recovered/Resolved with Sequelae]
  - Skin fragility [Recovering/Resolving]
  - Dermatitis contact [Recovered/Resolved with Sequelae]
  - Erythema [Recovered/Resolved]
  - Pain of skin [Recovered/Resolved]
  - Swelling face [Recovered/Resolved]
